FAERS Safety Report 7015429-5 (Version None)
Quarter: 2010Q3

REPORT INFORMATION
  Report Type: 
  Country: None (occurrence: None)
  Receive Date: 20100927
  Receipt Date: 20100921
  Transmission Date: 20110219
  Serious: Yes (Hospitalization)
  Sender: FDA-Public Use
  Company Number: PHHO2010US14076

PATIENT
  Weight: 64.853 kg

DRUGS (3)
  1. AFINITOR [Suspect]
     Indication: BREAST CANCER METASTATIC
     Dosage: 5MG DAILY
     Route: 048
     Dates: start: 20100716
  2. CISPLATIN COMP-CIS+ [Suspect]
     Indication: BREAST CANCER METASTATIC
     Dosage: 20MG/M2
     Route: 042
     Dates: start: 20100716
  3. PACLITAXEL [Suspect]
     Indication: BREAST CANCER METASTATIC
     Dosage: 70MG/M2
     Route: 042
     Dates: start: 20100716

REACTIONS (3)
  - FEBRILE NEUTROPENIA [None]
  - PYREXIA [None]
  - THROMBOCYTOPENIA [None]
